FAERS Safety Report 8326376-0 (Version None)
Quarter: 2012Q2

REPORT INFORMATION
  Report Type: 
  Country: None (occurrence: None)
  Receive Date: 20120501
  Receipt Date: 20090624
  Transmission Date: 20120825
  Serious: No
  Sender: FDA-Public Use
  Company Number: US-TEVA-2009007524

PATIENT
  Sex: Male
  Weight: 158.9 kg

DRUGS (7)
  1. EPLERENONE [Concomitant]
     Indication: MINERAL SUPPLEMENTATION
  2. UROXATRAL [Concomitant]
  3. LOTRIL [Concomitant]
  4. CITALOPRAM [Concomitant]
  5. NUVIGIL [Suspect]
     Dosage: 250 MILLIGRAM;
     Route: 048
     Dates: start: 20090624
  6. LYRICA [Concomitant]
     Indication: PAIN
  7. HYDROCHLOROTHIAZIDE [Concomitant]

REACTIONS (2)
  - THERAPEUTIC RESPONSE UNEXPECTED [None]
  - HEADACHE [None]
